FAERS Safety Report 7599367-5 (Version None)
Quarter: 2011Q3

REPORT INFORMATION
  Report Type: 
  Country: None (occurrence: None)
  Receive Date: 20110711
  Receipt Date: 20100108
  Transmission Date: 20111222
  Serious: Yes (Death, Hospitalization, Other)
  Sender: FDA-Public Use
  Company Number: US-BAYER-201010387NA

PATIENT
  Age: 75 Year
  Sex: Male
  Weight: 104.31 kg

DRUGS (10)
  1. TRASYLOL [Suspect]
     Indication: PRODUCT USED FOR UNKNOWN INDICATION
     Dosage: UNKNOWN LOADING DOSE THEN 50 CC PER HOUR WITH 200 CC PRIME
     Route: 042
     Dates: start: 19991103, end: 19991103
  2. ACETYLSALICYLIC ACID SRT [Concomitant]
  3. LASIX [Concomitant]
     Dosage: 40 MG, QD
  4. ANCEF [Concomitant]
     Dosage: 2 G, UNK
     Route: 042
     Dates: start: 19991103
  5. CIPROFLOXACIN [Concomitant]
     Dosage: 400 MG, UNK
  6. MANNITOL [Concomitant]
     Dosage: 12.5 G, UNK
  7. HEPARIN [Concomitant]
     Dosage: 40000 UNITS
  8. LISINOPRIL [Concomitant]
     Dosage: 40 MG, QD
     Route: 048
  9. LIDOCAINE [Concomitant]
  10. HEPARIN [Concomitant]
     Dosage: 10000 UNITS, PRIME

REACTIONS (12)
  - RENAL IMPAIRMENT [None]
  - RENAL FAILURE [None]
  - INJURY [None]
  - FEAR [None]
  - DEATH [None]
  - RENAL INJURY [None]
  - ANHEDONIA [None]
  - EMOTIONAL DISTRESS [None]
  - STRESS [None]
  - ANXIETY [None]
  - UNEVALUABLE EVENT [None]
  - PAIN [None]
